FAERS Safety Report 9190173 (Version 1)
Quarter: 2013Q1

REPORT INFORMATION
  Report Type: Spontaneous
  Country: US (occurrence: None)
  Receive Date: 20120703
  Receipt Date: 20120703
  Transmission Date: 20140127
  Serious: No
  Sender: FDA-Public Use
  Company Number: PHEH2012US007708

PATIENT
  Age: 51 Year
  Sex: Female

DRUGS (2)
  1. GILENYA (FTY) CAPSULE [Suspect]
     Indication: MULTIPLE SCLEROSIS
     Route: 048
  2. SOLU-MEDROL (METHYLPREDNISOLONE SODIUM SUCCINATE) [Suspect]
     Dosage: UNK UKN, UNK

REACTIONS (3)
  - Sinus congestion [None]
  - Urinary tract infection [None]
  - Hypersensitivity [None]
